FAERS Safety Report 7030743-5 (Version None)
Quarter: 2010Q4

REPORT INFORMATION
  Report Type: 
  Country: None (occurrence: None)
  Receive Date: 20101001
  Receipt Date: 20100917
  Transmission Date: 20110411
  Serious: Yes (Other)
  Sender: FDA-Public Use
  Company Number: A-US2010-39514

PATIENT
  Age: 77 Year
  Sex: Female

DRUGS (3)
  1. VENTAVIS [Suspect]
     Indication: PULMONARY ARTERIAL HYPERTENSION
     Dosage: RESPIRATORY
     Route: 055
     Dates: start: 20100805, end: 20100801
  2. VENTAVIS [Suspect]
  3. TRACLEER [Concomitant]

REACTIONS (3)
  - LIP SWELLING [None]
  - RASH [None]
  - SWELLING FACE [None]
